FAERS Safety Report 25768526 (Version 1)
Quarter: 2025Q3

REPORT INFORMATION
  Report Type: Spontaneous
  Country: CN (occurrence: CN)
  Receive Date: 20250905
  Receipt Date: 20250905
  Transmission Date: 20251021
  Serious: Yes (Hospitalization, Other)
  Sender: Kenvue
  Company Number: CN-KENVUE-20250900028

PATIENT

DRUGS (3)
  1. CHILDRENS MOTRIN [Suspect]
     Active Substance: IBUPROFEN
     Indication: Nasopharyngitis
     Dosage: 6 MILLILITER, FOUR TIME A DAY
     Route: 048
     Dates: start: 20250810, end: 20250813
  2. CHILDRENS MOTRIN [Suspect]
     Active Substance: IBUPROFEN
     Indication: Pyrexia
     Route: 048
     Dates: start: 20250820, end: 202508
  3. PREDNISONE [Concomitant]
     Active Substance: PREDNISONE
     Indication: Product used for unknown indication
     Route: 048
     Dates: start: 20250824

REACTIONS (3)
  - Incorrect dose administered [Unknown]
  - White blood cell count decreased [Recovered/Resolved]
  - Drug eruption [Recovering/Resolving]

NARRATIVE: CASE EVENT DATE: 20250810
